FAERS Safety Report 5673927-0 (Version None)
Quarter: 2008Q2

REPORT INFORMATION
  Report Type: 
  Country: None (occurrence: None)
  Receive Date: 20080228
  Receipt Date: 20070608
  Transmission Date: 20081010
  Serious: Yes (Death)
  Sender: FDA-Public Use
  Company Number: US200704005139

PATIENT
  Age: 27 Year
  Sex: Female

DRUGS (4)
  1. SYMBYAX [Suspect]
     Indication: BIPOLAR I DISORDER
  2. DARVOCET [Concomitant]
  3. XANAX [Concomitant]
  4. PONSTEL [Concomitant]

REACTIONS (1)
  - INTENTIONAL OVERDOSE [None]
